FAERS Safety Report 9720096 (Version 1)
Quarter: 2013Q4

REPORT INFORMATION
  Report Type: Spontaneous
  Country: JP (occurrence: JP)
  Receive Date: 20131128
  Receipt Date: 20131128
  Transmission Date: 20140711
  Serious: Yes (Other)
  Sender: FDA-Public Use
  Company Number: JP-ELI_LILLY_AND_COMPANY-JP201311006264

PATIENT
  Sex: Female

DRUGS (1)
  1. FORTEO [Suspect]
     Indication: PRODUCT USED FOR UNKNOWN INDICATION
     Dosage: UNK
     Route: 058
     Dates: start: 20131022, end: 20131117

REACTIONS (6)
  - Lower limb fracture [Not Recovered/Not Resolved]
  - Dizziness [Unknown]
  - Erythema [Unknown]
  - Skin discolouration [Unknown]
  - Fatigue [Unknown]
  - Sensation of heaviness [Unknown]
